FAERS Safety Report 4444371-9 (Version None)
Quarter: 2004Q3

REPORT INFORMATION
  Report Type: 
  Country: None (occurrence: None)
  Receive Date: 20040802
  Receipt Date: 20040318
  Transmission Date: 20050211
  Serious: No
  Sender: FDA-Public Use
  Company Number: 2004-114021-NL

PATIENT
  Age: 23 Year
  Sex: Female
  Weight: 54.5 kg

DRUGS (2)
  1. NUVARING [Suspect]
     Indication: CONTRACEPTION
     Dosage: DF DAILY VAGINAL
     Route: 067
     Dates: start: 20040308, end: 20040329
  2. MULTI-VITAMINS [Concomitant]

REACTIONS (6)
  - ADNEXA UTERI PAIN [None]
  - HEADACHE [None]
  - MENORRHAGIA [None]
  - MENSTRUAL DISORDER [None]
  - METRORRHAGIA [None]
  - NAUSEA [None]
